FAERS Safety Report 7774157-9 (Version None)
Quarter: 2011Q3

REPORT INFORMATION
  Report Type: 
  Country: None (occurrence: None)
  Receive Date: 20110923
  Receipt Date: 20110915
  Transmission Date: 20111222
  Serious: Yes (Life-Threatening, Hospitalization)
  Sender: FDA-Public Use
  Company Number: US-JNJFOC-20110611913

PATIENT
  Sex: Female
  Weight: 76.2 kg

DRUGS (25)
  1. TRUVADA [Concomitant]
     Route: 048
     Dates: start: 20110329, end: 20110531
  2. IBUPROFEN [Concomitant]
     Route: 048
     Dates: start: 20070611
  3. TMC114 [Suspect]
     Route: 048
     Dates: start: 20110816
  4. METHADONE HCL [Concomitant]
     Dates: start: 20110805
  5. DIOVAN HCT [Concomitant]
     Route: 048
     Dates: start: 20110805
  6. LOMOTIL [Concomitant]
     Indication: DIARRHOEA
     Route: 048
     Dates: start: 20100222
  7. LAC-HYDRIN [Concomitant]
     Indication: DRY SKIN
     Route: 061
     Dates: start: 20110617
  8. TRUVADA [Concomitant]
     Indication: HIV INFECTION
     Route: 048
     Dates: start: 20090922
  9. ADVAIR DISKUS 100/50 [Concomitant]
     Route: 055
     Dates: start: 20070820
  10. AMBIEN [Concomitant]
     Route: 048
     Dates: start: 20091020
  11. LAMIVUDINE [Concomitant]
     Indication: HIV INFECTION
     Route: 048
     Dates: start: 20110816
  12. METHADONE HCL [Concomitant]
     Dates: start: 20090818
  13. VALTREX [Concomitant]
     Route: 048
     Dates: start: 20091019
  14. RITONAVIR [Concomitant]
     Indication: HIV INFECTION
     Route: 048
     Dates: start: 20110816
  15. STROVITE FORTE [Concomitant]
     Route: 048
     Dates: start: 20030821
  16. WESTCORT [Concomitant]
     Route: 061
     Dates: start: 20110617
  17. ABACAVIR [Suspect]
     Indication: HIV INFECTION
     Dates: start: 20110816
  18. POTASSIUM CHLORIDE [Concomitant]
     Route: 048
     Dates: start: 20091123
  19. TMC114 [Suspect]
     Indication: HIV INFECTION
     Route: 048
     Dates: start: 20110329, end: 20110531
  20. DIOVAN HCT [Concomitant]
     Route: 048
     Dates: start: 20090922
  21. SEROQUEL [Concomitant]
     Dates: start: 20110311
  22. ETRAVIRINE [Suspect]
     Indication: HIV INFECTION
     Route: 048
     Dates: start: 20110329, end: 20110531
  23. RITONAVIR [Concomitant]
     Route: 048
     Dates: start: 20110329, end: 20110531
  24. RALTEGRAVIR [Concomitant]
     Indication: HIV INFECTION
     Route: 048
     Dates: start: 20110816
  25. RALTEGRAVIR [Concomitant]
     Route: 048
     Dates: start: 20110329, end: 20110531

REACTIONS (4)
  - HEPATIC FAILURE [None]
  - RENAL FAILURE ACUTE [None]
  - RASH [None]
  - SEPTIC SHOCK [None]
